FAERS Safety Report 9153347 (Version 1)
Quarter: 2013Q1

REPORT INFORMATION
  Report Type: Spontaneous
  Country: US (occurrence: None)
  Receive Date: 20130304
  Receipt Date: 20130304
  Transmission Date: 20140127
  Serious: Yes (Death)
  Sender: FDA-Public Use
  Company Number: None

PATIENT
  Age: 64 Year
  Sex: Female

DRUGS (1)
  1. LETAIRIS  10MG GILEAD [Suspect]
     Indication: PULMONARY HYPERTENSION
     Route: 048
     Dates: start: 201108, end: 201302

REACTIONS (3)
  - Extubation [None]
  - Dyspnoea [None]
  - Chronic obstructive pulmonary disease [None]
